FAERS Safety Report 20346274 (Version 4)
Quarter: 2024Q2

REPORT INFORMATION
  Report Type: Report from Study
  Country: DE (occurrence: DE)
  Receive Date: 20220118
  Receipt Date: 20240508
  Transmission Date: 20240716
  Serious: Yes (Hospitalization)
  Sender: FDA-Public Use
  Company Number: DE-ROCHE-2242981

PATIENT
  Age: 57 Year
  Sex: Female

DRUGS (18)
  1. BACLOFEN [Suspect]
     Active Substance: BACLOFEN
     Indication: Product used for unknown indication
     Dosage: UNK, 2-2-2 (0.16 DAY)
     Route: 065
     Dates: end: 20190620
  2. BACLOFEN [Suspect]
     Active Substance: BACLOFEN
     Dosage: 100 MILLIGRAM, (0.33 DAY)
     Route: 065
  3. BACLOFEN [Suspect]
     Active Substance: BACLOFEN
     Dosage: 100 MILLIGRAM, 2-2-2 (0.16 DAY)
     Route: 065
  4. BACLOFEN [Suspect]
     Active Substance: BACLOFEN
     Dosage: 25 MILLIGRAM, (0.33 DAY)
     Route: 065
  5. BENSERAZIDE HYDROCHLORIDE\LEVODOPA [Suspect]
     Active Substance: BENSERAZIDE HYDROCHLORIDE\LEVODOPA
     Indication: Product used for unknown indication
     Dosage: UNK, QD,100/25 MG (0-0-1)
     Route: 048
  6. OCREVUS [Interacting]
     Active Substance: OCRELIZUMAB
     Indication: Primary progressive multiple sclerosis
     Dosage: 600 MILLIGRAM
     Route: 042
  7. OCREVUS [Interacting]
     Active Substance: OCRELIZUMAB
     Dosage: 600 MILLIGRAM
     Route: 042
     Dates: start: 20201208
  8. OCREVUS [Interacting]
     Active Substance: OCRELIZUMAB
     Dosage: 300 MILLIGRAM, 13 DAY
     Route: 042
     Dates: start: 20181129
  9. OCREVUS [Interacting]
     Active Substance: OCRELIZUMAB
     Dosage: 600 MILLIGRAM
     Route: 042
     Dates: start: 20200630
  10. OCREVUS [Interacting]
     Active Substance: OCRELIZUMAB
     Dosage: 600 MILLIGRAM, 226 DAYS
     Route: 065
     Dates: start: 20210722, end: 20210722
  11. NABIXIMOLS [Concomitant]
     Active Substance: NABIXIMOLS
     Dosage: UNK, (0.12 DAY)
     Route: 065
  12. TIZANIDINE [Concomitant]
     Active Substance: TIZANIDINE
     Dosage: UNK
     Route: 065
  13. PREGABALIN [Concomitant]
     Active Substance: PREGABALIN
     Dosage: UNK, 2-0-2, (0.25 DAY)
     Route: 065
  14. PREGABALIN [Concomitant]
     Active Substance: PREGABALIN
     Dosage: 150 MILLIGRAM, (0.33 DAY)
     Route: 065
  15. Covid-19 vaccine [Concomitant]
     Dosage: UNK
     Route: 065
     Dates: start: 2021
  16. CANDESARTAN [Concomitant]
     Active Substance: CANDESARTAN
     Dosage: 0.4 MILLIGRAM, QD
     Route: 065
  17. CANDESARTAN [Concomitant]
     Active Substance: CANDESARTAN
     Dosage: 4 MILLIGRAM, QD
     Route: 065
  18. DALFAMPRIDINE [Concomitant]
     Active Substance: DALFAMPRIDINE
     Dosage: UNK, BID
     Route: 065

REACTIONS (20)
  - Endocarditis [Recovered/Resolved]
  - Urinary tract infection [Recovered/Resolved]
  - Skin laceration [Not Recovered/Not Resolved]
  - Dry skin [Not Recovered/Not Resolved]
  - Cystitis noninfective [Recovered/Resolved]
  - Muscle spasms [Recovered/Resolved]
  - Skin atrophy [Not Recovered/Not Resolved]
  - Drug interaction [Unknown]
  - Asthenia [Recovered/Resolved]
  - Pain in extremity [Not Recovered/Not Resolved]
  - Mass [Recovered/Resolved]
  - Skin exfoliation [Not Recovered/Not Resolved]
  - Sensory disturbance [Not Recovered/Not Resolved]
  - Muscle spasticity [Not Recovered/Not Resolved]
  - Infection [Unknown]
  - Haematoma [Not Recovered/Not Resolved]
  - Alopecia [Not Recovered/Not Resolved]
  - Headache [Recovered/Resolved]
  - Nausea [Recovering/Resolving]
  - Fatigue [Recovered/Resolved]

NARRATIVE: CASE EVENT DATE: 20190429
